FAERS Safety Report 23202972 (Version 3)
Quarter: 2024Q1

REPORT INFORMATION
  Report Type: Spontaneous
  Country: AU (occurrence: AU)
  Receive Date: 20231120
  Receipt Date: 20240112
  Transmission Date: 20240409
  Serious: Yes (Congenital Anomaly, Other)
  Sender: FDA-Public Use
  Company Number: AU-002147023-NVSC2023AU245614

PATIENT

DRUGS (1)
  1. FINGOLIMOD [Suspect]
     Active Substance: FINGOLIMOD
     Indication: Foetal exposure during pregnancy
     Dosage: MATERNAL DOSE: UNKNOWN
     Route: 064

REACTIONS (3)
  - Neural tube defect [Unknown]
  - Congenital anomaly [Unknown]
  - Foetal exposure during pregnancy [Unknown]
